FAERS Safety Report 8743594 (Version 2)
Quarter: 2012Q4

REPORT INFORMATION
  Report Type: 
  Country: US (occurrence: US)
  Receive Date: 20120829
  Receipt Date: 20120921
  Transmission Date: 20130627
  Serious: Yes (Death, Other)
  Sender: FDA-Public Use
  Company Number: US-PFIZER INC-2012205740

PATIENT
  Age: 68 Year
  Sex: Female

DRUGS (3)
  1. REVATIO [Suspect]
     Indication: PULMONARY HYPERTENSION
     Dosage: 20 mg, 3x/day
     Dates: start: 20120103
  2. REVATIO [Suspect]
     Dosage: 40 mg, 3x/day
     Route: 048
     Dates: start: 200508, end: 201208
  3. LETAIRIS [Concomitant]
     Dosage: UNK

REACTIONS (1)
  - Death [Fatal]
